FAERS Safety Report 23590697 (Version 3)
Quarter: 2024Q1

REPORT INFORMATION
  Report Type: Spontaneous
  Country: PT (occurrence: PT)
  Receive Date: 20240304
  Receipt Date: 20240314
  Transmission Date: 20240410
  Serious: Yes (Other)
  Sender: FDA-Public Use
  Company Number: None

PATIENT
  Age: 73 Year
  Sex: Female

DRUGS (4)
  1. LEVOTHYROXINE SODIUM [Suspect]
     Active Substance: LEVOTHYROXINE SODIUM
     Indication: Hypothyroidism
     Dosage: 1 TABLET PER DAY
     Route: 048
     Dates: start: 20240201, end: 20240204
  2. PANTOPRAZOLE [Concomitant]
     Active Substance: PANTOPRAZOLE
     Indication: Product used for unknown indication
  3. VITERRA PLUS [Concomitant]
     Indication: Product used for unknown indication
  4. OSTEOCARE [CALCIUM;COLECALCIFEROL;MAGNESIUM;ZINC] [Concomitant]
     Indication: Product used for unknown indication

REACTIONS (3)
  - Presyncope [Recovered/Resolved]
  - Dizziness [Recovered/Resolved]
  - Impaired reasoning [Recovered/Resolved]

NARRATIVE: CASE EVENT DATE: 20240201
